FAERS Safety Report 10601354 (Version 1)
Quarter: 2014Q4

REPORT INFORMATION
  Report Type: Spontaneous
  Country: US (occurrence: None)
  Receive Date: 20141121
  Receipt Date: 20141121
  Transmission Date: 20150529
  Serious: No
  Sender: FDA-Public Use
  Company Number: None

PATIENT
  Age: 52 Year
  Sex: Female

DRUGS (1)
  1. HUMIRA [Suspect]
     Active Substance: ADALIMUMAB
     Indication: ANKYLOSING SPONDYLITIS
     Dosage: 1 PEN EVERY OTHER WEEK SUBCUTANEOUS
     Route: 058
     Dates: start: 20141120, end: 20141120

REACTIONS (2)
  - Product container issue [None]
  - Product quality issue [None]

NARRATIVE: CASE EVENT DATE: 20141120
